FAERS Safety Report 24777253 (Version 1)
Quarter: 2024Q4

REPORT INFORMATION
  Report Type: Spontaneous
  Country: US (occurrence: US)
  Receive Date: 20241226
  Receipt Date: 20241226
  Transmission Date: 20250114
  Serious: No
  Sender: TEVA
  Company Number: US-TEVA-VS-3274006

PATIENT
  Age: 22 Year
  Sex: Male

DRUGS (1)
  1. UZEDY [Suspect]
     Active Substance: RISPERIDONE
     Indication: Schizophrenia
     Dosage: 200/0.56MG/ML
     Route: 065

REACTIONS (3)
  - Feeling hot [Unknown]
  - Product use in unapproved indication [Unknown]
  - Memory impairment [Unknown]
